FAERS Safety Report 6370031-3 (Version None)
Quarter: 2009Q3

REPORT INFORMATION
  Report Type: 
  Country: None (occurrence: None)
  Receive Date: 20090923
  Receipt Date: 20070822
  Transmission Date: 20100115
  Serious: Yes (Other)
  Sender: FDA-Public Use
  Company Number: US-ASTRAZENECA-2006UW01766

PATIENT
  Age: 13 Year
  Sex: Female
  Weight: 47.6 kg

DRUGS (12)
  1. SEROQUEL [Suspect]
     Indication: SCHIZOPHRENIA
     Route: 048
     Dates: start: 20040701, end: 20060501
  2. SEROQUEL [Suspect]
     Indication: DEPRESSION
     Route: 048
     Dates: start: 20040701, end: 20060501
  3. SEROQUEL [Suspect]
     Indication: BIPOLAR DISORDER
     Route: 048
     Dates: start: 20040701, end: 20060501
  4. SEROQUEL [Suspect]
     Dosage: 25 MG TILL 200 MG
     Route: 048
     Dates: start: 20030922
  5. SEROQUEL [Suspect]
     Dosage: 25 MG TILL 200 MG
     Route: 048
     Dates: start: 20030922
  6. SEROQUEL [Suspect]
     Dosage: 25 MG TILL 200 MG
     Route: 048
     Dates: start: 20030922
  7. GEODON [Concomitant]
     Dates: start: 20050201, end: 20060501
  8. LORATADINE [Concomitant]
  9. DIFLUCAN [Concomitant]
  10. PREDNISONE TAB [Concomitant]
  11. ZYRTEC [Concomitant]
  12. PATANOL [Concomitant]

REACTIONS (3)
  - DIABETES MELLITUS [None]
  - OBESITY [None]
  - PANCREATITIS [None]
